FAERS Safety Report 7469591-0 (Version None)
Quarter: 2011Q2

REPORT INFORMATION
  Report Type: 
  Country: None (occurrence: None)
  Receive Date: 20110510
  Receipt Date: 20110425
  Transmission Date: 20111010
  Serious: Yes (Other)
  Sender: FDA-Public Use
  Company Number: PHHY2011US31022

PATIENT
  Sex: Female

DRUGS (1)
  1. VIVELLE-DOT [Suspect]
     Dosage: 75 UG, TWICE WEEKLY
     Route: 062

REACTIONS (8)
  - VAGINAL HAEMORRHAGE [None]
  - MOOD SWINGS [None]
  - UTERINE LEIOMYOMA [None]
  - UTERINE CERVICAL SQUAMOUS METAPLASIA [None]
  - POSTMENOPAUSAL HAEMORRHAGE [None]
  - METRORRHAGIA [None]
  - ENDOMETRIAL DISORDER [None]
  - MUSCLE SPASMS [None]
